FAERS Safety Report 4749788-0 (Version None)
Quarter: 2005Q3

REPORT INFORMATION
  Report Type: 
  Country: None (occurrence: None)
  Receive Date: 20050822
  Receipt Date: 20050816
  Transmission Date: 20060218
  Serious: Yes (Other)
  Sender: FDA-Public Use
  Company Number: PHNR2005AU01269

PATIENT
  Age: 55 Year

DRUGS (2)
  1. ATGAM [Concomitant]
     Indication: APLASTIC ANAEMIA
  2. NEORAL [Suspect]
     Indication: APLASTIC ANAEMIA

REACTIONS (1)
  - CONGESTIVE CARDIOMYOPATHY [None]
